FAERS Safety Report 9001858 (Version 1)
Quarter: 2013Q1

REPORT INFORMATION
  Report Type: Spontaneous
  Country: US (occurrence: US)
  Receive Date: 20130108
  Receipt Date: 20130108
  Transmission Date: 20140127
  Serious: No
  Sender: FDA-Public Use
  Company Number: US-009507513-1301USA002118

PATIENT
  Age: 46 Year
  Sex: Female
  Weight: 87.75 kg

DRUGS (12)
  1. VICTRELIS [Suspect]
     Dosage: 4 DF, TID
     Route: 048
  2. PEGINTRON [Suspect]
     Dosage: 150 MCG/0.5 ML MIX AS DIRECTED, DIAL TO 0.5 ML
     Route: 058
  3. RIBAVIRIN [Suspect]
     Route: 048
  4. PROCRIT [Concomitant]
     Dosage: 40000/ML
  5. VITASMART B50 B COMPLEX [Concomitant]
     Route: 048
  6. FISH OIL CAP [Concomitant]
     Route: 048
  7. VITAMIN B 50 B-COMPLEX [Concomitant]
     Route: 048
  8. MULTI TABS [Concomitant]
     Route: 048
  9. MOBIC [Concomitant]
     Route: 048
  10. FLONASE [Concomitant]
     Dosage: SPR
  11. AZOPT [Concomitant]
     Dosage: SUSPENSION
     Route: 049
  12. WELLBUTRIN [Concomitant]
     Route: 048

REACTIONS (1)
  - Red blood cell count decreased [Recovered/Resolved]
